FAERS Safety Report 5240792-5 (Version None)
Quarter: 2007Q1

REPORT INFORMATION
  Report Type: 
  Country: None (occurrence: None)
  Receive Date: 20070219
  Receipt Date: 20070212
  Transmission Date: 20070707
  Serious: Yes (Other)
  Sender: FDA-Public Use
  Company Number: US-BAYER-200710485BWH

PATIENT

DRUGS (1)
  1. AVELOX [Suspect]
     Indication: DRUG USE FOR UNKNOWN INDICATION

REACTIONS (1)
  - HEPATIC ENZYME INCREASED [None]
